FAERS Safety Report 16329234 (Version 3)
Quarter: 2019Q4

REPORT INFORMATION
  Report Type: Report from Study
  Country: BR (occurrence: BR)
  Receive Date: 20190520
  Receipt Date: 20191206
  Transmission Date: 20200122
  Serious: Yes (Hospitalization, Other)
  Sender: FDA-Public Use
  Company Number: BR-EMD SERONO-9071367

PATIENT
  Age: 54 Year
  Sex: Female

DRUGS (4)
  1. LITHIUM. [Concomitant]
     Active Substance: LITHIUM
     Indication: DEPRESSION
  2. BIO-MANGUINHOS BETAINTERFERONA 1A 44 MCG [Suspect]
     Active Substance: INTERFERON BETA-1A
     Indication: MULTIPLE SCLEROSIS
     Dosage: THERAPY START DATE 16-OCT-2019
     Route: 058
  3. CLONAZEPAM. [Concomitant]
     Active Substance: CLONAZEPAM
     Indication: SLEEP DISORDER
  4. REBIF [Suspect]
     Active Substance: INTERFERON BETA-1A
     Indication: MULTIPLE SCLEROSIS
     Route: 058
     Dates: start: 20100122, end: 20191015

REACTIONS (22)
  - Swelling [Recovering/Resolving]
  - Bladder obstruction [Recovered/Resolved]
  - Injection site bruising [Unknown]
  - Hyperhidrosis [Not Recovered/Not Resolved]
  - Gastrointestinal hypomotility [Recovering/Resolving]
  - Chills [Recovered/Resolved]
  - Pyrexia [Recovered/Resolved]
  - Injection site haematoma [Unknown]
  - Paraesthesia [Unknown]
  - Immune system disorder [Unknown]
  - Bladder disorder [Recovering/Resolving]
  - Peripheral swelling [Unknown]
  - Tendon rupture [Recovering/Resolving]
  - Intervertebral disc protrusion [Not Recovered/Not Resolved]
  - Headache [Recovered/Resolved]
  - Asthenia [Unknown]
  - Depressed mood [Not Recovered/Not Resolved]
  - Post procedural complication [Unknown]
  - Hypoaesthesia [Unknown]
  - Feeling cold [Unknown]
  - Procedural pain [Not Recovered/Not Resolved]
  - Hypokinesia [Not Recovered/Not Resolved]

NARRATIVE: CASE EVENT DATE: 2018
